FAERS Safety Report 23307326 (Version 1)
Quarter: 2023Q4

REPORT INFORMATION
  Report Type: Spontaneous
  Country: FR (occurrence: FR)
  Receive Date: 20231218
  Receipt Date: 20231218
  Transmission Date: 20240110
  Serious: Yes (Hospitalization, Other)
  Sender: FDA-Public Use
  Company Number: None

PATIENT
  Age: 54 Year
  Sex: Male
  Weight: 84.1 kg

DRUGS (4)
  1. ADALIMUMAB [Suspect]
     Active Substance: ADALIMUMAB\ISOPROPYL ALCOHOL
     Indication: Crohn^s disease
     Dosage: 1 DOSAGE FORM, Q2WK
     Route: 058
     Dates: start: 202207, end: 202303
  2. PERINDOPRIL [Concomitant]
     Active Substance: PERINDOPRIL
     Dosage: UNK
     Route: 065
  3. INDAPAMIDE [Concomitant]
     Active Substance: INDAPAMIDE
     Dosage: UNK
     Route: 065
  4. Previscan [Concomitant]
     Dosage: UNK
     Route: 065

REACTIONS (2)
  - Ocular icterus [Recovered/Resolved]
  - Haptoglobin decreased [Recovered/Resolved]

NARRATIVE: CASE EVENT DATE: 20230301
